FAERS Safety Report 13627471 (Version 1)
Quarter: 2017Q2

REPORT INFORMATION
  Report Type: Spontaneous
  Country: US (occurrence: US)
  Receive Date: 20170608
  Receipt Date: 20170608
  Transmission Date: 20170830
  Serious: No
  Sender: FDA-Public Use
  Company Number: None

PATIENT
  Age: 36 Year
  Sex: Female

DRUGS (1)
  1. IMATINIB MES TAB 100MG [Suspect]
     Active Substance: IMATINIB MESYLATE

REACTIONS (6)
  - Underdose [None]
  - Nausea [None]
  - Gingival bleeding [None]
  - Wrong technique in product usage process [None]
  - Contusion [None]
  - Fatigue [None]

NARRATIVE: CASE EVENT DATE: 20170522
